FAERS Safety Report 4633293-6 (Version None)
Quarter: 2005Q2

REPORT INFORMATION
  Report Type: 
  Country: None (occurrence: None)
  Receive Date: 20050408
  Receipt Date: 20050324
  Transmission Date: 20051028
  Serious: Yes (Hospitalization, Congenital Anomaly)
  Sender: FDA-Public Use
  Company Number: 2005SE01903

PATIENT
  Sex: Female

DRUGS (1)
  1. ATACAND [Suspect]
     Dosage: 4 MG QD TPL
     Route: 064
     Dates: start: 20030101, end: 20031210

REACTIONS (4)
  - DRUG EXPOSURE DURING PREGNANCY [None]
  - PULMONARY VALVE STENOSIS [None]
  - TRANSPOSITION OF THE GREAT VESSELS [None]
  - VENTRICULAR SEPTAL DEFECT [None]
